FAERS Safety Report 19488410 (Version 1)
Quarter: 2021Q3

REPORT INFORMATION
  Report Type: Report from Study
  Country: IT (occurrence: IT)
  Receive Date: 20210702
  Receipt Date: 20210702
  Transmission Date: 20211014
  Serious: Yes (Other)
  Sender: FDA-Public Use
  Company Number: IT-PFIZER INC-2021750490

PATIENT
  Age: 48 Year
  Sex: Female

DRUGS (2)
  1. ZIRTEC [Suspect]
     Active Substance: CETIRIZINE HYDROCHLORIDE
     Indication: AGITATION
     Dosage: 200 MG, TOTAL
     Route: 048
     Dates: start: 20210610, end: 20210610
  2. XANAX [Suspect]
     Active Substance: ALPRAZOLAM
     Dosage: 15 MG, TOTAL
     Route: 048
     Dates: start: 20210610, end: 20210610

REACTIONS (2)
  - Sopor [Recovering/Resolving]
  - Drug abuse [Recovering/Resolving]

NARRATIVE: CASE EVENT DATE: 20210611
